FAERS Safety Report 13809670 (Version 1)
Quarter: 2017Q3

REPORT INFORMATION
  Report Type: Spontaneous
  Country: US (occurrence: US)
  Receive Date: 20170728
  Receipt Date: 20170728
  Transmission Date: 20171127
  Serious: Yes (Other)
  Sender: FDA-Public Use
  Company Number: US-ELI_LILLY_AND_COMPANY-US201707007318

PATIENT
  Age: 62 Year
  Sex: Female

DRUGS (2)
  1. PROZAC [Suspect]
     Active Substance: FLUOXETINE HYDROCHLORIDE
     Indication: PRODUCT USED FOR UNKNOWN INDICATION
     Dosage: UNK, UNKNOWN
     Route: 065
  2. CYMBALTA [Suspect]
     Active Substance: DULOXETINE HYDROCHLORIDE
     Indication: FIBROMYALGIA
     Dosage: UNK UNK, UNKNOWN
     Route: 065
     Dates: start: 2016

REACTIONS (25)
  - Sleep disorder [Not Recovered/Not Resolved]
  - Weight increased [Recovered/Resolved]
  - Suicidal ideation [Not Recovered/Not Resolved]
  - Retching [Not Recovered/Not Resolved]
  - Rash pruritic [Unknown]
  - Prescription drug used without a prescription [Unknown]
  - Tinnitus [Not Recovered/Not Resolved]
  - Disturbance in attention [Not Recovered/Not Resolved]
  - Hyperacusis [Not Recovered/Not Resolved]
  - Gastrooesophageal reflux disease [Not Recovered/Not Resolved]
  - Headache [Not Recovered/Not Resolved]
  - Withdrawal syndrome [Unknown]
  - Eye pain [Not Recovered/Not Resolved]
  - Insomnia [Not Recovered/Not Resolved]
  - Abdominal pain upper [Not Recovered/Not Resolved]
  - Nausea [Not Recovered/Not Resolved]
  - Hallucination [Not Recovered/Not Resolved]
  - Hot flush [Not Recovered/Not Resolved]
  - Hormone level abnormal [Unknown]
  - Vomiting [Not Recovered/Not Resolved]
  - Hepatic steatosis [Not Recovered/Not Resolved]
  - Weight increased [Not Recovered/Not Resolved]
  - Head titubation [Not Recovered/Not Resolved]
  - Photophobia [Not Recovered/Not Resolved]
  - Feeling abnormal [Not Recovered/Not Resolved]

NARRATIVE: CASE EVENT DATE: 201707
